FAERS Safety Report 18185594 (Version 3)
Quarter: 2020Q3

REPORT INFORMATION
  Report Type: Report from Study
  Country: None (occurrence: CO)
  Receive Date: 20200824
  Receipt Date: 20200925
  Transmission Date: 20201103
  Serious: Yes (Other)
  Sender: FDA-Public Use
  Company Number: CO-ABBVIE-20K-036-3329290-00

PATIENT
  Sex: Female

DRUGS (3)
  1. HUMIRA [Suspect]
     Active Substance: ADALIMUMAB
     Route: 058
     Dates: end: 20200727
  2. HUMIRA [Suspect]
     Active Substance: ADALIMUMAB
     Indication: COLITIS ULCERATIVE
     Route: 058
     Dates: start: 20190710
  3. PREDNISOLONE. [Suspect]
     Active Substance: PREDNISOLONE
     Indication: PRODUCT USED FOR UNKNOWN INDICATION
     Route: 065
     Dates: end: 202001

REACTIONS (23)
  - Dermatitis [Not Recovered/Not Resolved]
  - Inflammation [Not Recovered/Not Resolved]
  - Bone pain [Not Recovered/Not Resolved]
  - Gastritis [Recovering/Resolving]
  - Oral herpes [Unknown]
  - Irritable bowel syndrome [Not Recovered/Not Resolved]
  - Colitis ulcerative [Not Recovered/Not Resolved]
  - Back pain [Recovering/Resolving]
  - Mental disorder [Unknown]
  - Fungal pharyngitis [Recovering/Resolving]
  - Hordeolum [Unknown]
  - Hypotension [Not Recovered/Not Resolved]
  - Stress [Not Recovered/Not Resolved]
  - Colitis [Recovered/Resolved]
  - Asthenia [Not Recovered/Not Resolved]
  - Anaemia [Not Recovered/Not Resolved]
  - Memory impairment [Recovering/Resolving]
  - Decreased appetite [Recovered/Resolved]
  - Gastrointestinal sounds abnormal [Not Recovered/Not Resolved]
  - Herpes zoster [Recovering/Resolving]
  - Musculoskeletal chest pain [Recovering/Resolving]
  - Throat irritation [Recovered/Resolved]
  - Hypophagia [Recovered/Resolved]

NARRATIVE: CASE EVENT DATE: 2019
